FAERS Safety Report 6772778-3 (Version None)
Quarter: 2010Q2

REPORT INFORMATION
  Report Type: 
  Country: None (occurrence: None)
  Receive Date: 20100616
  Receipt Date: 20100610
  Transmission Date: 20101027
  Serious: Yes (Hospitalization)
  Sender: FDA-Public Use
  Company Number: FR-BRISTOL-MYERS SQUIBB COMPANY-15122609

PATIENT
  Age: 58 Year
  Sex: Female

DRUGS (11)
  1. TAXOL [Suspect]
     Indication: BREAST CANCER
     Route: 042
     Dates: start: 20090801
  2. PREVISCAN [Suspect]
     Indication: SUPERIOR VENA CAVAL OCCLUSION
     Route: 048
  3. LORAZEPAM [Concomitant]
  4. LERCAN [Concomitant]
  5. TRIATEC [Concomitant]
  6. LASIX [Concomitant]
  7. PARIET [Concomitant]
  8. VIRLIX [Concomitant]
  9. POLARAMINE [Concomitant]
     Indication: PREMEDICATION
  10. RANIPLEX [Concomitant]
     Indication: PREMEDICATION
  11. SOLU-MEDROL [Concomitant]
     Indication: PREMEDICATION

REACTIONS (1)
  - CYSTITIS HAEMORRHAGIC [None]
